FAERS Safety Report 10698091 (Version 6)
Quarter: 2015Q3

REPORT INFORMATION
  Report Type: Report from Study
  Country: DE (occurrence: DE)
  Receive Date: 20150108
  Receipt Date: 20150713
  Transmission Date: 20151125
  Serious: Yes (Hospitalization, Other)
  Sender: FDA-Public Use
  Company Number: DE-BAYER-2014-187258

PATIENT
  Age: 63 Year
  Sex: Male
  Weight: 55.9 kg

DRUGS (12)
  1. STIVARGA [Suspect]
     Active Substance: REGORAFENIB
     Indication: COLORECTAL CANCER METASTATIC
     Dosage: 80 MG, QD, USUALLY IN THE EVENING
     Route: 048
     Dates: start: 20141210, end: 20141217
  2. MARCUMAR [Concomitant]
     Active Substance: PHENPROCOUMON
     Dosage: 1 DF, QD, ACCORDING TO QUICK VALUE
     Dates: start: 20140505, end: 20141112
  3. BISOPROLOL [Concomitant]
     Active Substance: BISOPROLOL
     Dosage: DAILY DOSE 2.5 MG
     Dates: start: 20141211
  4. RAMILICH [Concomitant]
     Active Substance: RAMIPRIL
     Dosage: DAILY DOSE 10 MG
     Dates: start: 20141211
  5. BEPANTHOL [Concomitant]
     Indication: DRUG TOXICITY PROPHYLAXIS
     Dosage: UNK
     Dates: start: 20141112
  6. PANTOPRAZOLE [Concomitant]
     Active Substance: PANTOPRAZOLE SODIUM
     Dosage: DAILY DOSE 40 MG
     Dates: start: 2012
  7. AMLODIPIN [Concomitant]
     Active Substance: AMLODIPINE BESYLATE
     Dosage: DAILY DOSE 5 MG
     Dates: start: 2012
  8. STIVARGA [Suspect]
     Active Substance: REGORAFENIB
     Indication: COLORECTAL CANCER METASTATIC
     Dosage: 120 MG, QD, USUALLY IN THE EVENING
     Route: 048
     Dates: start: 20141126, end: 20141130
  9. KALINOR [Concomitant]
     Active Substance: POTASSIUM CITRATE
     Dosage: 1 DF, QD
     Dates: start: 2014
  10. LOPEDIUM [Concomitant]
     Active Substance: LOPERAMIDE
     Dosage: 2 DF, UPTO 4X2 IN DIARRHEA AS NEEDED
     Dates: start: 2014
  11. STIVARGA [Suspect]
     Active Substance: REGORAFENIB
     Indication: COLORECTAL CANCER METASTATIC
     Dosage: 80 MG, QD, USUALLY IN THE EVENING
     Route: 048
     Dates: start: 20141112
  12. BEPANTHOL [Concomitant]
     Indication: DRUG TOXICITY PROPHYLAXIS
     Dosage: UNK
     Route: 061
     Dates: start: 20141105

REACTIONS (6)
  - Apathy [Recovered/Resolved]
  - Asthenia [Recovered/Resolved]
  - Dyspnoea [Recovered/Resolved]
  - Back pain [Recovered/Resolved]
  - Dehydration [Recovered/Resolved]
  - Fatigue [Recovered/Resolved]

NARRATIVE: CASE EVENT DATE: 20141215
